FAERS Safety Report 7100943-4 (Version None)
Quarter: 2010Q4

REPORT INFORMATION
  Report Type: 
  Country: None (occurrence: None)
  Receive Date: 20101113
  Receipt Date: 20100413
  Transmission Date: 20110411
  Serious: Yes (Hospitalization)
  Sender: FDA-Public Use
  Company Number: US-ALLERGAN-1002927US

PATIENT
  Age: 59 Year
  Sex: Female
  Weight: 66.667 kg

DRUGS (3)
  1. BOTOXA? [Suspect]
     Indication: TORTICOLLIS
     Dosage: 150 UNITS, SINGLE
     Dates: start: 20100210, end: 20100210
  2. BOTOXA? [Suspect]
     Dosage: 100 UNITS, SINGLE
     Dates: start: 20091216, end: 20091216
  3. BOTOXA? [Suspect]
     Dosage: 100 UNITS, SINGLE

REACTIONS (1)
  - DYSPHAGIA [None]
